FAERS Safety Report 12425557 (Version 3)
Quarter: 2016Q2

REPORT INFORMATION
  Report Type: Report from Study
  Country: IN (occurrence: IN)
  Receive Date: 20160601
  Receipt Date: 20160624
  Transmission Date: 20160815
  Serious: Yes (Death, Other)
  Sender: FDA-Public Use
  Company Number: PHHY2016IN071212

PATIENT
  Sex: Male

DRUGS (1)
  1. GLIVEC [Suspect]
     Active Substance: IMATINIB MESYLATE
     Indication: GASTROINTESTINAL STROMAL TUMOUR
     Dosage: 400 MG, UNK
     Route: 065

REACTIONS (6)
  - Myocardial infarction [Unknown]
  - Death [Fatal]
  - Embolic stroke [Unknown]
  - Cerebrovascular disorder [Unknown]
  - Malaise [Unknown]
  - Critical illness [Unknown]
